FAERS Safety Report 5938293-1 (Version None)
Quarter: 2008Q4

REPORT INFORMATION
  Report Type: 
  Country: None (occurrence: None)
  Receive Date: 20081031
  Receipt Date: 20081030
  Transmission Date: 20090506
  Serious: Yes (Other)
  Sender: FDA-Public Use
  Company Number: AU-MERCK-0810AUS00160

PATIENT
  Age: 22 Year
  Sex: Male

DRUGS (2)
  1. PROPECIA [Suspect]
     Indication: HAIR DISORDER
     Route: 065
     Dates: end: 20071112
  2. MINOXIDIL [Suspect]
     Indication: HAIR DISORDER
     Route: 065
     Dates: end: 20071112

REACTIONS (3)
  - ABDOMINAL PAIN [None]
  - BACK PAIN [None]
  - RENAL FAILURE ACUTE [None]
